FAERS Safety Report 16296932 (Version 1)
Quarter: 2019Q2

REPORT INFORMATION
  Report Type: Spontaneous
  Country: FR (occurrence: FR)
  Receive Date: 20190510
  Receipt Date: 20190510
  Transmission Date: 20190711
  Serious: Yes (Hospitalization)
  Sender: FDA-Public Use
  Company Number: FR-TEVA-2019-FR-1047952

PATIENT
  Age: 94 Year
  Sex: Male
  Weight: 62.3 kg

DRUGS (15)
  1. DAPTOMYCINE [Suspect]
     Active Substance: DAPTOMYCIN
     Indication: INFECTION
     Dates: start: 20190307, end: 20190321
  2. RIFAMPICINE [Suspect]
     Active Substance: RIFAMPIN
     Indication: INFECTION
     Route: 042
     Dates: start: 20190307, end: 20190313
  3. ORBENINE [Suspect]
     Active Substance: CLOXACILLIN SODIUM
     Indication: INFECTION
     Route: 042
     Dates: start: 20190304, end: 20190319
  4. GENTAMICINE PANPHARMA [Suspect]
     Active Substance: GENTAMICIN
     Indication: INFECTION
     Route: 042
     Dates: start: 20190304, end: 20190308
  5. VANCOMYCINE SANDOZ 1 G, POUDRE POUR SOLUTION POUR PERFUSION [Suspect]
     Active Substance: VANCOMYCIN
     Indication: INFECTION
     Route: 042
     Dates: start: 20190304, end: 20190308
  6. LEVOTHYROX [Concomitant]
     Active Substance: LEVOTHYROXINE
  7. PARACETAMOL [Concomitant]
     Active Substance: ACETAMINOPHEN
  8. FUROSEMIDE. [Concomitant]
     Active Substance: FUROSEMIDE
  9. DIFFU K, G?LULE [Concomitant]
     Active Substance: POTASSIUM CHLORIDE
  10. KARDEGIC [Concomitant]
     Active Substance: ASPIRIN DL-LYSINE
  11. ALLOPURINOL. [Concomitant]
     Active Substance: ALLOPURINOL
  12. FINASTERIDE. [Concomitant]
     Active Substance: FINASTERIDE
  13. CANDESARTAN CILEXETIL. [Concomitant]
     Active Substance: CANDESARTAN CILEXETIL
  14. ALFUZOSINE (CHLORHYDRATE D^) [Concomitant]
     Active Substance: ALFUZOSIN HYDROCHLORIDE
  15. RANITIDINE. [Suspect]
     Active Substance: RANITIDINE
     Indication: INFECTION
     Route: 048
     Dates: start: 20190306, end: 20190322

REACTIONS (3)
  - Thrombocytopenia [Not Recovered/Not Resolved]
  - Purpura [Not Recovered/Not Resolved]
  - Jaundice [Not Recovered/Not Resolved]

NARRATIVE: CASE EVENT DATE: 20190307
